FAERS Safety Report 16181201 (Version 1)
Quarter: 2019Q2

REPORT INFORMATION
  Report Type: Spontaneous
  Country: IT (occurrence: IT)
  Receive Date: 20190410
  Receipt Date: 20190410
  Transmission Date: 20190711
  Serious: Yes (Life-Threatening)
  Sender: FDA-Public Use
  Company Number: IT-ELI_LILLY_AND_COMPANY-IT201904004559

PATIENT
  Age: 70 Year
  Sex: Male
  Weight: 70 kg

DRUGS (12)
  1. CHLORPHENAMINE MALEATE [Concomitant]
     Active Substance: CHLORPHENIRAMINE MALEATE
     Indication: PREMEDICATION
     Dosage: 10 MG, UNK
     Route: 041
     Dates: start: 20190228, end: 20190228
  2. LANSOPRAZOLE. [Concomitant]
     Active Substance: LANSOPRAZOLE
     Indication: PRODUCT USED FOR UNKNOWN INDICATION
     Dosage: 15 MG, DAILY
  3. XARELTO [Concomitant]
     Active Substance: RIVAROXABAN
     Indication: PRODUCT USED FOR UNKNOWN INDICATION
     Dosage: 15 MG, DAILY
  4. CYMBALTA [Concomitant]
     Active Substance: DULOXETINE HYDROCHLORIDE
     Indication: PRODUCT USED FOR UNKNOWN INDICATION
     Dosage: 60 MG, DAILY
  5. TRESIBA [Concomitant]
     Active Substance: INSULIN DEGLUDEC
     Indication: PRODUCT USED FOR UNKNOWN INDICATION
     Dosage: 33 IU, DAILY
  6. DEXAMETHASONE PHOSPHATE [Concomitant]
     Active Substance: DEXAMETHASONE PHOSPHATE
     Indication: PREMEDICATION
     Dosage: 12 MG, UNK
     Route: 041
     Dates: start: 20190228, end: 20190228
  7. FINASTERIDE. [Concomitant]
     Active Substance: FINASTERIDE
     Indication: PRODUCT USED FOR UNKNOWN INDICATION
     Dosage: 5 MG, DAILY
  8. ZOFENOPRIL [Concomitant]
     Active Substance: ZOFENOPRIL
     Indication: PRODUCT USED FOR UNKNOWN INDICATION
     Dosage: 30 MG, DAILY
  9. NOVORAPID [Concomitant]
     Active Substance: INSULIN ASPART
     Indication: TYPE 1 DIABETES MELLITUS
     Dosage: 22 IU, DAILY
  10. ERBITUX [Suspect]
     Active Substance: CETUXIMAB
     Indication: TONGUE NEOPLASM MALIGNANT STAGE UNSPECIFIED
     Dosage: 0.7 G, TOTAL
     Route: 041
     Dates: start: 20190228, end: 20190228
  11. RANITIDINE. [Concomitant]
     Active Substance: RANITIDINE
     Indication: PREMEDICATION
     Dosage: 50 MG, UNK
     Route: 041
     Dates: start: 20190228, end: 20190228
  12. DUROGESIC [Concomitant]
     Active Substance: FENTANYL
     Indication: DIABETIC NEUROPATHY
     Dosage: 1 DOSAGE FORM, DAILY

REACTIONS (5)
  - Laryngeal oedema [Recovered/Resolved]
  - Incontinence [Recovered/Resolved]
  - Loss of consciousness [Recovered/Resolved]
  - Hypoperfusion [Recovered/Resolved]
  - Hypersensitivity [Recovered/Resolved]

NARRATIVE: CASE EVENT DATE: 20190228
